FAERS Safety Report 5397681-5 (Version None)
Quarter: 2007Q3

REPORT INFORMATION
  Report Type: 
  Country: None (occurrence: None)
  Receive Date: 20070726
  Receipt Date: 20070712
  Transmission Date: 20080115
  Serious: Yes (Hospitalization)
  Sender: FDA-Public Use
  Company Number: US-ROCHE-501516

PATIENT
  Age: 63 Year
  Sex: Female
  Weight: 83.7 kg

DRUGS (17)
  1. VALGANCICLOVIR HCL [Suspect]
     Indication: CYTOMEGALOVIRUS VIRAEMIA
     Route: 065
     Dates: start: 20070301, end: 20070503
  2. BENDAMUSTINE HCL [Suspect]
     Indication: NON-HODGKIN'S LYMPHOMA
     Dosage: GIVEN ON DAYS ONE AND TWO OF EACH THREE-WEEK-CYCLE.
     Route: 042
     Dates: start: 20061205
  3. BENDAMUSTINE HCL [Suspect]
     Dosage: GIVEN ON DAYS ONE AND TWO OF EACH THREE-WEEK-CYCLE.
     Route: 042
     Dates: end: 20070221
  4. ATENOLOL [Concomitant]
     Dates: start: 20020819
  5. LEXAPRO [Concomitant]
     Dates: start: 20030124
  6. FLUCONAZOLE [Concomitant]
     Dates: start: 20030103
  7. TRIMETHOPRIM [Concomitant]
  8. SULFAMETHOXAZOLE [Concomitant]
  9. CIPRO [Concomitant]
  10. GEMFIBROZIL [Concomitant]
     Dates: start: 20050621
  11. PANTOPRAZOLE SODIUM [Concomitant]
  12. GLIMEPIRIDE [Concomitant]
  13. PREVACID [Concomitant]
  14. LORAZEPAM [Concomitant]
  15. COZAAR [Concomitant]
  16. METFORMIN HCL [Concomitant]
  17. AMBIEN [Concomitant]

REACTIONS (3)
  - CONFUSIONAL STATE [None]
  - PANCYTOPENIA [None]
  - PNEUMONIA [None]
